FAERS Safety Report 11510877 (Version 1)
Quarter: 2015Q3

REPORT INFORMATION
  Report Type: Spontaneous
  Country: US (occurrence: US)
  Receive Date: 20150915
  Receipt Date: 20150915
  Transmission Date: 20151125
  Serious: Yes (Other)
  Sender: FDA-Public Use
  Company Number: US-CIPLA LTD.-2015US07276

PATIENT

DRUGS (2)
  1. Y-CLIVATUZUMAB TETRAXETAN [Suspect]
     Active Substance: YTTRIUM Y-90 CLIVATUZUMAB TETRAXETAN
     Indication: PANCREATIC CARCINOMA METASTATIC
     Dosage: 6.5 MCI/M2 ONCE-WEEKLY FOR 3 WEEKS
     Route: 065
  2. GEMCITABINE [Suspect]
     Active Substance: GEMCITABINE\GEMCITABINE HYDROCHLORIDE
     Indication: PANCREATIC CARCINOMA METASTATIC
     Dosage: 200 MG/M2, ONCE-WEEKLY FOR 4 WEEKS STARTING 5 DAYS BEFORE BEGINNING Y-CLIVATUZUMAB TETRAXETAN
     Route: 065

REACTIONS (1)
  - Cerebrovascular accident [Unknown]
